FAERS Safety Report 9438084 (Version 1)
Quarter: 2013Q3

REPORT INFORMATION
  Report Type: Spontaneous
  Country: US (occurrence: US)
  Receive Date: 20130802
  Receipt Date: 20130802
  Transmission Date: 20140515
  Serious: Yes (Other)
  Sender: FDA-Public Use
  Company Number: US-BRISTOL-MYERS SQUIBB COMPANY-16814337

PATIENT
  Age: 64 Year
  Sex: Male
  Weight: 104.31 kg

DRUGS (6)
  1. COUMADIN [Suspect]
     Indication: CEREBROVASCULAR ACCIDENT
     Dates: start: 2008
  2. WARFARIN SODIUM [Suspect]
  3. PLAVIX [Suspect]
  4. ASPIRIN [Suspect]
  5. ALLOPURINOL [Concomitant]
  6. COLCHICINE HOUDE [Concomitant]

REACTIONS (1)
  - Contusion [Unknown]
